FAERS Safety Report 17011831 (Version 2)
Quarter: 2019Q4

REPORT INFORMATION
  Report Type: Spontaneous
  Country: FR (occurrence: FR)
  Receive Date: 20191108
  Receipt Date: 20191209
  Transmission Date: 20200122
  Serious: No
  Sender: FDA-Public Use
  Company Number: FR-TOLMAR, INC.-19FR000797

PATIENT
  Age: 56 Year
  Sex: Female

DRUGS (1)
  1. ELIGARD [Suspect]
     Active Substance: LEUPROLIDE ACETATE
     Indication: OCCUPATIONAL EXPOSURE TO PRODUCT
     Dosage: UNK
     Route: 003

REACTIONS (4)
  - Intercepted product preparation error [Unknown]
  - Syringe issue [Unknown]
  - Occupational exposure to product [Unknown]
  - Wrong technique in product usage process [Unknown]

NARRATIVE: CASE EVENT DATE: 20191004
